FAERS Safety Report 9917100 (Version 1)
Quarter: 2014Q1

REPORT INFORMATION
  Report Type: Spontaneous
  Country: US (occurrence: US)
  Receive Date: 20140221
  Receipt Date: 20140221
  Transmission Date: 20141002
  Serious: No
  Sender: FDA-Public Use
  Company Number: US-GILEAD-2014-0095150

PATIENT
  Age: 52 Year
  Sex: Female

DRUGS (7)
  1. LETAIRIS [Suspect]
     Indication: PULMONARY HYPERTENSION
     Dosage: 10 MG, QD
     Route: 065
     Dates: start: 20130704
  2. DIOVAN [Concomitant]
  3. LASIX                              /00032601/ [Concomitant]
  4. AMLODIPINE [Concomitant]
  5. MULTIVITAMIN                       /07504101/ [Concomitant]
  6. OSCAL                              /07357001/ [Concomitant]
  7. NEXIUM                             /01479302/ [Concomitant]

REACTIONS (1)
  - Oedema peripheral [Not Recovered/Not Resolved]
